FAERS Safety Report 6236682-1 (Version None)
Quarter: 2009Q2

REPORT INFORMATION
  Report Type: 
  Country: None (occurrence: None)
  Receive Date: 20090619
  Receipt Date: 20090310
  Transmission Date: 20091009
  Serious: No
  Sender: FDA-Public Use
  Company Number: US-ASTRAZENECA-2009UW03941

PATIENT
  Age: 84 Year
  Sex: Female
  Weight: 67.1 kg

DRUGS (5)
  1. ATACAND HCT [Suspect]
     Indication: HYPERTENSION
     Dosage: 16/12.5 MG
     Route: 048
     Dates: start: 20090128, end: 20090201
  2. ATACAND HCT [Suspect]
     Dosage: 32/12.5 MG
     Route: 048
     Dates: start: 20090201
  3. CRESTOR [Suspect]
     Indication: BLOOD CHOLESTEROL INCREASED
     Route: 048
  4. RANITIDINE [Concomitant]
  5. NORVASC [Concomitant]

REACTIONS (3)
  - DYSPEPSIA [None]
  - IRRITABILITY [None]
  - NERVOUSNESS [None]
